FAERS Safety Report 11321460 (Version 1)
Quarter: 2015Q3

REPORT INFORMATION
  Report Type: Spontaneous
  Country: US (occurrence: US)
  Receive Date: 20150729
  Receipt Date: 20150729
  Transmission Date: 20151125
  Serious: No
  Sender: FDA-Public Use
  Company Number: US-ENDO PHARMACEUTICALS INC.-2015-001667

PATIENT
  Age: 66 Year
  Sex: Female
  Weight: 65.83 kg

DRUGS (9)
  1. ESTRADIOL W/TESTOSTERONE [Suspect]
     Active Substance: ESTRADIOL\TESTOSTERONE
     Indication: LOSS OF LIBIDO
     Dosage: APPLY TO CLITORIS IN THE EVENING
     Route: 061
     Dates: start: 20150429
  2. LIVALO [Concomitant]
     Active Substance: PITAVASTATIN CALCIUM
     Indication: BLOOD CHOLESTEROL INCREASED
  3. METFORMIN [Concomitant]
     Active Substance: METFORMIN HYDROCHLORIDE
     Indication: DIABETES MELLITUS
  4. TESTOPEL [Suspect]
     Active Substance: TESTOSTERONE
     Dosage: 2 PELLETS IMPLANTED IN UPPER RIGHT HIP
     Route: 058
     Dates: start: 20150209
  5. NEXIUM [Concomitant]
     Active Substance: ESOMEPRAZOLE MAGNESIUM
     Indication: GASTROOESOPHAGEAL REFLUX DISEASE
  6. TESTOPEL [Suspect]
     Active Substance: TESTOSTERONE
     Indication: LOSS OF LIBIDO
     Dosage: 3 PELLETS IMPLANTED IN LEFT HIP
     Route: 058
     Dates: start: 20150429
  7. TOPROL XL [Concomitant]
     Active Substance: METOPROLOL SUCCINATE
     Indication: HYPERTENSION
  8. LISINOPRIL. [Concomitant]
     Active Substance: LISINOPRIL
     Indication: HYPERTENSION
  9. GLIMEPIRIDE. [Concomitant]
     Active Substance: GLIMEPIRIDE
     Indication: DIABETES MELLITUS

REACTIONS (4)
  - Female orgasmic disorder [Not Recovered/Not Resolved]
  - Product use issue [Not Recovered/Not Resolved]
  - Drug effect decreased [Not Recovered/Not Resolved]
  - Enlarged clitoris [Not Recovered/Not Resolved]

NARRATIVE: CASE EVENT DATE: 2015
